FAERS Safety Report 25748302 (Version 3)
Quarter: 2025Q3

REPORT INFORMATION
  Report Type: Report from Study
  Country: US (occurrence: US)
  Receive Date: 20250902
  Receipt Date: 20250917
  Transmission Date: 20251021
  Serious: Yes (Hospitalization, Other)
  Sender: ABBVIE
  Company Number: US-ABBVIE-6438981

PATIENT
  Age: 75 Year
  Sex: Male
  Weight: 87 kg

DRUGS (1)
  1. SKYRIZI [Suspect]
     Active Substance: RISANKIZUMAB-RZAA
     Indication: Psoriasis
     Dosage: UNKNOWN
     Route: 058
     Dates: start: 20230619

REACTIONS (3)
  - Lung neoplasm malignant [Not Recovered/Not Resolved]
  - Bladder cancer [Not Recovered/Not Resolved]
  - Tongue neoplasm malignant stage unspecified [Recovering/Resolving]

NARRATIVE: CASE EVENT DATE: 20241201
